FAERS Safety Report 19170632 (Version 2)
Quarter: 2021Q3

REPORT INFORMATION
  Report Type: Spontaneous
  Country: US (occurrence: US)
  Receive Date: 20210422
  Receipt Date: 20210719
  Transmission Date: 20211014
  Serious: No
  Sender: FDA-Public Use
  Company Number: US-OTSUKA-2021_008951

PATIENT
  Age: 78 Year
  Sex: Female

DRUGS (1)
  1. INQOVI [Suspect]
     Active Substance: CEDAZURIDINE\DECITABINE
     Indication: MYELODYSPLASTIC SYNDROME
     Dosage: 135 MG (35 MG DECITABINE AND 100 MG CEDAZURIDINE) QD FOR 3 DAYS PER CYCLE
     Route: 065

REACTIONS (3)
  - Product dose omission issue [Unknown]
  - Product blister packaging issue [Unknown]
  - Product use issue [Unknown]

NARRATIVE: CASE EVENT DATE: 20210314
